FAERS Safety Report 11070559 (Version 1)
Quarter: 2015Q2

REPORT INFORMATION
  Report Type: Spontaneous
  Country: CO (occurrence: CO)
  Receive Date: 20150427
  Receipt Date: 20150427
  Transmission Date: 20150821
  Serious: Yes (Hospitalization)
  Sender: FDA-Public Use
  Company Number: CO-BAXTER-2015BAX021445

PATIENT
  Age: 76 Year
  Sex: Male
  Weight: 70 kg

DRUGS (4)
  1. DICLOFENAC [Suspect]
     Active Substance: DICLOFENAC
     Indication: PRODUCT USED FOR UNKNOWN INDICATION
     Dosage: 2 AMPOULES PER DAY
     Route: 030
     Dates: start: 20150410, end: 20150410
  2. CEPHAZOLIN [Suspect]
     Active Substance: CEFAZOLIN
     Indication: PROPHYLAXIS
     Dosage: 3 AMPOULES/DAY
     Route: 042
     Dates: start: 20150410, end: 20150410
  3. GLICINA AL 1,5% EN AGUA [Suspect]
     Active Substance: GLYCINE
     Indication: BLADDER IRRIGATION
     Route: 066
     Dates: start: 20150410, end: 20150411
  4. DIPYRONE [Suspect]
     Active Substance: DIPYRONE
     Indication: PRODUCT USED FOR UNKNOWN INDICATION
     Dosage: 3 AMPOULES PER DAY
     Route: 042
     Dates: start: 20150410, end: 20150410

REACTIONS (7)
  - Hyponatraemia [Recovered/Resolved]
  - Encephalopathy [Recovered/Resolved]
  - Tachypnoea [Recovered/Resolved]
  - Respiratory disorder [Recovered/Resolved]
  - Depressed level of consciousness [Recovered/Resolved]
  - Metabolic acidosis [Recovered/Resolved]
  - Somnolence [Recovered/Resolved]

NARRATIVE: CASE EVENT DATE: 20150410
